FAERS Safety Report 23183313 (Version 1)
Quarter: 2023Q4

REPORT INFORMATION
  Report Type: Report from Study
  Country: TW (occurrence: None)
  Receive Date: 20231114
  Receipt Date: 20231114
  Transmission Date: 20240110
  Serious: Yes (Other)
  Sender: FDA-Public Use
  Company Number: 2023A254179

PATIENT
  Age: 207 Month
  Sex: Male
  Weight: 56.1 kg

DRUGS (6)
  1. KOSELUGO [Suspect]
     Active Substance: SELUMETINIB
     Indication: Neurofibromatosis
     Dosage: 10MG TO 40 MG DAILY
     Route: 048
     Dates: start: 20221104
  2. KOSELUGO [Suspect]
     Active Substance: SELUMETINIB
     Indication: Neurofibromatosis
     Route: 048
     Dates: end: 20221128
  3. KOSELUGO [Suspect]
     Active Substance: SELUMETINIB
     Indication: Neurofibromatosis
     Dosage: 10 MG HS
     Route: 048
  4. KOSELUGO [Suspect]
     Active Substance: SELUMETINIB
     Indication: Neurofibromatosis
     Dosage: 20 MG HS
     Route: 048
  5. KOSELUGO [Suspect]
     Active Substance: SELUMETINIB
     Indication: Neurofibromatosis
     Dosage: 30 MG
     Route: 048
  6. KOSELUGO [Suspect]
     Active Substance: SELUMETINIB
     Indication: Neurofibromatosis
     Dosage: 40MG DAILY FOR A TOTAL OF 7 DAYS
     Route: 048

REACTIONS (7)
  - Abdominal distension [Unknown]
  - Abdominal pain upper [Unknown]
  - Seborrhoeic dermatitis [Unknown]
  - Rash [Unknown]
  - Nausea [Recovered/Resolved]
  - Diarrhoea [Recovered/Resolved]
  - COVID-19 [Unknown]

NARRATIVE: CASE EVENT DATE: 20221101
